FAERS Safety Report 21596423 (Version 1)
Quarter: 2022Q4

REPORT INFORMATION
  Report Type: Spontaneous
  Country: DK (occurrence: DK)
  Receive Date: 20221115
  Receipt Date: 20221115
  Transmission Date: 20230112
  Serious: Yes (Death, Life-Threatening, Hospitalization, Other)
  Sender: FDA-Public Use
  Company Number: DK-MLMSERVICE-2022103138889111

PATIENT
  Age: 40 Year
  Sex: Male

DRUGS (3)
  1. MYCOPHENOLATE MOFETIL [Suspect]
     Active Substance: MYCOPHENOLATE MOFETIL
     Indication: Immunosuppressant drug therapy
  2. TACROLIMUS [Suspect]
     Active Substance: TACROLIMUS
     Indication: Immunosuppressant drug therapy
  3. PREDNISOLONE [Suspect]
     Active Substance: PREDNISOLONE
     Indication: Immunosuppressant drug therapy

REACTIONS (7)
  - Metastases to retroperitoneum [Fatal]
  - Metastases to liver [Fatal]
  - Small intestinal obstruction [Fatal]
  - Metastases to bone [Fatal]
  - Bladder transitional cell carcinoma stage III [Fatal]
  - Metastases to abdominal wall [Fatal]
  - Metastatic neoplasm [Fatal]
